FAERS Safety Report 13311380 (Version 2)
Quarter: 2017Q4

REPORT INFORMATION
  Report Type: Spontaneous
  Country: US (occurrence: US)
  Receive Date: 20170309
  Receipt Date: 20171121
  Transmission Date: 20180320
  Serious: No
  Sender: FDA-Public Use
  Company Number: US-JNJFOC-20170300272

PATIENT
  Age: 6 Year
  Sex: Male

DRUGS (9)
  1. INVEGA SUSTENNA [Suspect]
     Active Substance: PALIPERIDONE PALMITATE
     Indication: TOURETTE^S DISORDER
     Route: 030
     Dates: start: 20140430, end: 20140528
  2. RISPERDAL [Suspect]
     Active Substance: RISPERIDONE
     Indication: TOURETTE^S DISORDER
     Dosage: DOSE: IN VARYING DOSES OF 1 MG, 1.5 MG AND 3 MG OF VARYING FREQUENCY.
     Route: 048
     Dates: start: 19981030, end: 20070329
  3. RISPERIDONE. [Suspect]
     Active Substance: RISPERIDONE
     Indication: TOURETTE^S DISORDER
     Route: 048
     Dates: start: 20140421, end: 20140527
  4. INVEGA [Suspect]
     Active Substance: PALIPERIDONE
     Indication: TOURETTE^S DISORDER
     Route: 048
     Dates: start: 20060203
  5. INVEGA [Suspect]
     Active Substance: PALIPERIDONE
     Indication: TOURETTE^S DISORDER
     Dosage: DOSE: IN VARYING DOSES OF 3 MG, 6 MG AND 9 MG.
     Route: 048
     Dates: start: 20070422, end: 20100425
  6. INVEGA [Suspect]
     Active Substance: PALIPERIDONE
     Indication: TOURETTE^S DISORDER
     Route: 048
     Dates: start: 20130115, end: 20140528
  7. INVEGA SUSTENNA [Suspect]
     Active Substance: PALIPERIDONE PALMITATE
     Indication: TOURETTE^S DISORDER
     Route: 030
     Dates: start: 20130115, end: 20140407
  8. RISPERDAL [Suspect]
     Active Substance: RISPERIDONE
     Indication: TIC
     Dosage: DOSE: IN VARYING DOSES OF 1 MG, 1.5 MG AND 3 MG OF VARYING FREQUENCY.
     Route: 048
     Dates: start: 19981030, end: 20070329
  9. RISPERDAL M-TAB [Suspect]
     Active Substance: RISPERIDONE
     Indication: PRODUCT USED FOR UNKNOWN INDICATION
     Route: 048

REACTIONS (4)
  - Emotional disorder [Unknown]
  - Gynaecomastia [Unknown]
  - Product use in unapproved indication [Unknown]
  - Off label use [Unknown]

NARRATIVE: CASE EVENT DATE: 19981030
